FAERS Safety Report 17402609 (Version 1)
Quarter: 2020Q1

REPORT INFORMATION
  Report Type: Spontaneous
  Country: US (occurrence: US)
  Receive Date: 20200210
  Receipt Date: 20200210
  Transmission Date: 20200409
  Serious: Yes (Life-Threatening)
  Sender: FDA-Public Use
  Company Number: None

PATIENT
  Age: 84 Year
  Sex: Male
  Weight: 72.6 kg

DRUGS (9)
  1. ATORVASTATIN 80MG [Concomitant]
     Active Substance: ATORVASTATIN
  2. DABIGATRAN 150MG [Concomitant]
     Active Substance: DABIGATRAN
  3. DABIGATRAN [Suspect]
     Active Substance: DABIGATRAN
     Indication: CAROTID ARTERY DISEASE
     Route: 048
     Dates: start: 20180711, end: 20200129
  4. FUROSEMIDE 20MG [Concomitant]
     Active Substance: FUROSEMIDE
  5. CLOPIDOGREL [Concomitant]
     Active Substance: CLOPIDOGREL BISULFATE
  6. FLUTICASONE NASAL SPRAY [Concomitant]
     Active Substance: FLUTICASONE
  7. CARVEDILOL 3.125MG [Concomitant]
     Active Substance: CARVEDILOL
  8. FERROUS SULFATE 325MG [Concomitant]
     Active Substance: FERROUS SULFATE
  9. OMEPRAZOLE 20MG [Concomitant]
     Active Substance: OMEPRAZOLE

REACTIONS (4)
  - Cerebral infarction [None]
  - Cerebral artery occlusion [None]
  - Haematoma [None]
  - Tracheal deviation [None]

NARRATIVE: CASE EVENT DATE: 20200129
